FAERS Safety Report 24991978 (Version 1)
Quarter: 2025Q1

REPORT INFORMATION
  Report Type: Spontaneous
  Country: FR (occurrence: FR)
  Receive Date: 20250220
  Receipt Date: 20250220
  Transmission Date: 20250409
  Serious: Yes (Other)
  Sender: MYLAN
  Company Number: None

PATIENT
  Age: 17 Year
  Sex: Female

DRUGS (2)
  1. SERTRALINE [Suspect]
     Active Substance: SERTRALINE HYDROCHLORIDE
     Indication: Product used for unknown indication
     Dosage: 25 MILLIGRAM, QD
     Route: 048
     Dates: start: 20250107
  2. DIENOGEST [Concomitant]
     Active Substance: DIENOGEST
     Indication: Endometriosis
     Route: 048
     Dates: start: 2024

REACTIONS (1)
  - Uterine haemorrhage [Not Recovered/Not Resolved]

NARRATIVE: CASE EVENT DATE: 20250111
